FAERS Safety Report 20043858 (Version 3)
Quarter: 2022Q2

REPORT INFORMATION
  Report Type: Report from Study
  Country: GB (occurrence: GB)
  Receive Date: 20211108
  Receipt Date: 20220425
  Transmission Date: 20220720
  Serious: Yes (Other)
  Sender: FDA-Public Use
  Company Number: GB-NOVARTISPH-NVSC2021GB126813

PATIENT
  Sex: Female

DRUGS (1)
  1. FINGOLIMOD [Suspect]
     Active Substance: FINGOLIMOD
     Indication: Multiple sclerosis
     Dosage: 0.5 MG, QD
     Route: 048
     Dates: start: 20210427

REACTIONS (10)
  - Eye haemorrhage [Unknown]
  - Urinary retention [Unknown]
  - Skin papilloma [Unknown]
  - Polyuria [Recovering/Resolving]
  - Mass [Unknown]
  - Constipation [Unknown]
  - Acrochordon [Unknown]
  - Melanocytic naevus [Unknown]
  - COVID-19 [Unknown]
  - Product dose omission issue [Unknown]
